FAERS Safety Report 5573880-4 (Version None)
Quarter: 2007Q4

REPORT INFORMATION
  Report Type: 
  Country: None (occurrence: None)
  Receive Date: 20071226
  Receipt Date: 20071220
  Transmission Date: 20080405
  Serious: Yes (Hospitalization)
  Sender: FDA-Public Use
  Company Number: US-ROXANE LABORATORIES, INC-2007-DE-07491GD

PATIENT
  Age: 52 Year
  Sex: Male

DRUGS (7)
  1. NAPROXEN [Suspect]
     Indication: ARTHRALGIA
  2. ACETAMINOPHEN [Suspect]
     Dosage: 2 TABLETS
     Route: 048
  3. ENALAPRIL [Suspect]
     Indication: HYPERTENSION
  4. IPRATROPIUM BROMIDE AND ALBUTEROL SULFATE [Concomitant]
     Route: 055
  5. ROSIGLITAZONE [Concomitant]
     Indication: DIABETES MELLITUS
  6. FLUTICASONE PROPIONATE [Concomitant]
     Route: 055
  7. PREDNISONE [Concomitant]
     Indication: RHEUMATOID ARTHRITIS

REACTIONS (5)
  - AZOTAEMIA [None]
  - DRUG INEFFECTIVE [None]
  - HYPERKALAEMIA [None]
  - NEPHRITIS INTERSTITIAL [None]
  - RENAL FAILURE ACUTE [None]
